FAERS Safety Report 5760855-5 (Version None)
Quarter: 2008Q2

REPORT INFORMATION
  Report Type: 
  Country: None (occurrence: None)
  Receive Date: 20080606
  Receipt Date: 20080527
  Transmission Date: 20081010
  Serious: Yes (Other)
  Sender: FDA-Public Use
  Company Number: US-KINGPHARMUSA00001-K200800603

PATIENT

DRUGS (3)
  1. SKELAXIN [Suspect]
     Indication: NECK PAIN
     Dosage: 800 MG, TID
     Route: 048
     Dates: start: 20080501, end: 20080501
  2. ALEVE [Concomitant]
     Dosage: UNK, UNK
  3. UNSPECIFIED BIRTH CONTROL PILL [Concomitant]
     Dosage: UNK, UNK

REACTIONS (1)
  - VISUAL FIELD DEFECT [None]
